FAERS Safety Report 20614574 (Version 1)
Quarter: 2022Q1

REPORT INFORMATION
  Report Type: Spontaneous
  Country: NL (occurrence: NL)
  Receive Date: 20220321
  Receipt Date: 20220321
  Transmission Date: 20220423
  Serious: Yes (Life-Threatening, Hospitalization)
  Sender: FDA-Public Use
  Company Number: NL-SUN PHARMACEUTICAL INDUSTRIES LTD-2022RR-330053

PATIENT
  Age: 25 Year
  Sex: Female
  Weight: 65 kg

DRUGS (3)
  1. ISOTRETINOIN [Suspect]
     Active Substance: ISOTRETINOIN
     Indication: Acne
     Dosage: 30 MILLIGRAM, DAILY, 1D 3 PIECES
     Route: 065
     Dates: start: 20220109, end: 20220116
  2. MAGNESIUMHYDROXIDE KAUWTABLET 724MG / Brand name not specifiedMAGNE... [Concomitant]
     Indication: Product used for unknown indication
     Dosage: CHEWABLE TABLET, 724 MG (MILLIGRAMS)
     Route: 065
  3. COLECALCIFEROL CAPSULE  25.000IE / Brand name not specifiedCOLECALC... [Concomitant]
     Indication: Product used for unknown indication
     Dosage: CAPSULE, 25000 UNITS
     Route: 065

REACTIONS (6)
  - Dyspnoea [Recovered/Resolved]
  - Pericardial effusion [Recovered/Resolved]
  - Myalgia [Recovered/Resolved]
  - Pericarditis [Recovered/Resolved]
  - Eosinophilic pneumonia acute [Recovered/Resolved]
  - Rash erythematous [Recovered/Resolved]

NARRATIVE: CASE EVENT DATE: 20220117
